FAERS Safety Report 7495469-2 (Version None)
Quarter: 2011Q2

REPORT INFORMATION
  Report Type: 
  Country: None (occurrence: None)
  Receive Date: 20110523
  Receipt Date: 20110509
  Transmission Date: 20111010
  Serious: Yes (Hospitalization, Other)
  Sender: FDA-Public Use
  Company Number: US-AMGEN-USASP2011014995

PATIENT
  Age: 9 Year
  Sex: Female
  Weight: 22 kg

DRUGS (12)
  1. PROCRIT [Suspect]
     Dosage: 5000 IU, Q3WK
     Route: 058
  2. PULMOZYME [Concomitant]
     Dosage: UNK
  3. PHOSLO [Concomitant]
     Dosage: UNK
  4. ALBUTEROL [Concomitant]
     Dosage: UNK
  5. VALCYTE [Concomitant]
     Dosage: UNK
     Dates: start: 20101018, end: 20110222
  6. PERIACTIN [Concomitant]
     Dosage: UNK
  7. PROCRIT [Suspect]
     Indication: NEPHROGENIC ANAEMIA
     Dosage: 1000 A?G, 3 TIMES/WK
     Dates: start: 20080101, end: 20110315
  8. CELLCEPT [Concomitant]
     Dosage: UNK
     Dates: start: 20040225
  9. SYMBICORT [Concomitant]
     Dosage: UNK
  10. VALGANCICLOVIR [Concomitant]
     Indication: ANAEMIA
  11. FERROUS SULFATE TAB [Concomitant]
     Dosage: UNK
  12. ATENOLOL [Concomitant]
     Dosage: UNK

REACTIONS (10)
  - APLASIA PURE RED CELL [None]
  - WHITE BLOOD CELL COUNT DECREASED [None]
  - CYTOMEGALOVIRUS TEST POSITIVE [None]
  - MEAN CELL VOLUME INCREASED [None]
  - THERAPEUTIC RESPONSE DECREASED [None]
  - HYPERPARATHYROIDISM [None]
  - HOSPITALISATION [None]
  - RETICULOCYTE COUNT DECREASED [None]
  - MACROCYTOSIS [None]
  - HLA MARKER STUDY POSITIVE [None]
